FAERS Safety Report 4664521-9 (Version None)
Quarter: 2005Q2

REPORT INFORMATION
  Report Type: 
  Country: None (occurrence: None)
  Receive Date: 20050518
  Receipt Date: 20050221
  Transmission Date: 20051028
  Serious: Yes (Life-Threatening)
  Sender: FDA-Public Use
  Company Number: PHBS2005JP02852

PATIENT
  Age: 37 Year
  Sex: Female

DRUGS (2)
  1. VOLTAREN [Suspect]
     Indication: PAIN IN EXTREMITY
     Dosage: 25 MG/DAY
     Route: 048
     Dates: start: 20050221, end: 20050221
  2. ALUSA [Concomitant]
     Dates: start: 20050221, end: 20050221

REACTIONS (7)
  - ANAPHYLACTIC SHOCK [None]
  - BLOOD PRESSURE DECREASED [None]
  - DYSPNOEA [None]
  - FEELING ABNORMAL [None]
  - OXYGEN SATURATION DECREASED [None]
  - PRURITUS [None]
  - RASH [None]
